FAERS Safety Report 8406165-9 (Version None)
Quarter: 2012Q2

REPORT INFORMATION
  Report Type: 
  Country: None (occurrence: None)
  Receive Date: 20120529
  Receipt Date: 20100901
  Transmission Date: 20120825
  Serious: Yes (Death)
  Sender: FDA-Public Use
  Company Number: 010007

PATIENT
  Age: 87 Year
  Sex: Female

DRUGS (10)
  1. PLETAL [Suspect]
     Indication: PERIPHERAL ARTERIAL OCCLUSIVE DISEASE
     Dosage: 50 MG, QD, ORAL
     Route: 048
     Dates: start: 20090319, end: 20100210
  2. BONALON (ALENDRONATE SODIUM HYDRATE) [Concomitant]
  3. ALFAROL (ALFACALCIDOL) [Concomitant]
  4. DOXAZOSIN MESYLATE [Concomitant]
  5. NYROZIN (VITAMIN B NOS) [Concomitant]
  6. MADOROS (MALTOSE) [Concomitant]
  7. ASPIRIN [Concomitant]
  8. ISOSORBIDE MONONITRATE [Concomitant]
  9. CONIEL (BENIDIPINE HYDROCHLORIDE) [Concomitant]
  10. TENORMIN [Concomitant]

REACTIONS (6)
  - PYREXIA [None]
  - DECREASED APPETITE [None]
  - GAIT DISTURBANCE [None]
  - RESPIRATORY ARREST [None]
  - UNEVALUABLE EVENT [None]
  - INFECTION [None]
